FAERS Safety Report 11312101 (Version 3)
Quarter: 2015Q3

REPORT INFORMATION
  Report Type: Report from Study
  Country: CH (occurrence: CH)
  Receive Date: 20150727
  Receipt Date: 20150914
  Transmission Date: 20151125
  Serious: Yes (Other)
  Sender: FDA-Public Use
  Company Number: CH-BAYER-2015-381482

PATIENT
  Age: 20 Year
  Sex: Female
  Weight: 61 kg

DRUGS (6)
  1. MIRENA [Suspect]
     Active Substance: LEVONORGESTREL
     Indication: MENORRHAGIA
     Dosage: 20 MCG/24HR, CONT
     Route: 015
     Dates: start: 20150505, end: 20150505
  2. MIRENA [Suspect]
     Active Substance: LEVONORGESTREL
     Indication: DYSMENORRHOEA
  3. STESOLID [Concomitant]
     Active Substance: DIAZEPAM
     Indication: INTRA-UTERINE CONTRACEPTIVE DEVICE INSERTION
  4. BUSCOPAN [Concomitant]
     Active Substance: BUTYLSCOPOLAMINE BROMIDE
     Indication: INTRA-UTERINE CONTRACEPTIVE DEVICE INSERTION
  5. ARTHROTEC [Concomitant]
     Active Substance: DICLOFENAC SODIUM\MISOPROSTOL
     Indication: INTRA-UTERINE CONTRACEPTIVE DEVICE INSERTION
  6. XANAX [Concomitant]
     Active Substance: ALPRAZOLAM

REACTIONS (7)
  - Vomiting [Recovered/Resolved]
  - Complication of device insertion [None]
  - Presyncope [None]
  - Procedural pain [Recovered/Resolved]
  - Circulatory collapse [Recovered/Resolved]
  - Device difficult to use [Recovered/Resolved]
  - Nausea [Recovered/Resolved]

NARRATIVE: CASE EVENT DATE: 20150505
